FAERS Safety Report 19969340 (Version 2)
Quarter: 2021Q4

REPORT INFORMATION
  Report Type: Spontaneous
  Country: US (occurrence: US)
  Receive Date: 20211019
  Receipt Date: 20211027
  Transmission Date: 20220303
  Serious: Yes (Hospitalization)
  Sender: FDA-Public Use
  Company Number: US-CELGENE-USA-20211003660

PATIENT
  Sex: Male

DRUGS (1)
  1. POMALYST [Suspect]
     Active Substance: POMALIDOMIDE
     Indication: Acute lymphocytic leukaemia
     Dosage: 4 MILLIGRAM
     Route: 048
     Dates: start: 201504

REACTIONS (1)
  - Clostridium difficile infection [Unknown]
